FAERS Safety Report 7331037-0 (Version None)
Quarter: 2011Q1

REPORT INFORMATION
  Report Type: 
  Country: None (occurrence: None)
  Receive Date: 20110304
  Receipt Date: 20110223
  Transmission Date: 20110831
  Serious: Yes (Other)
  Sender: FDA-Public Use
  Company Number: US-RB-022796-11

PATIENT
  Age: 55 Year
  Sex: Female

DRUGS (1)
  1. SUBOXONE [Suspect]
     Indication: DRUG DEPENDENCE
     Dosage: SUBLINGUAL FILM- 8 MILLIGRAM ONCE AS INITIAL DOSE
     Route: 060
     Dates: start: 20110217, end: 20110217

REACTIONS (4)
  - OFF LABEL USE [None]
  - DRUG WITHDRAWAL SYNDROME [None]
  - FEELING JITTERY [None]
  - HALLUCINATION [None]
